FAERS Safety Report 8502456-1 (Version None)
Quarter: 2012Q3

REPORT INFORMATION
  Report Type: 
  Country: None (occurrence: None)
  Receive Date: 20120711
  Receipt Date: 20120703
  Transmission Date: 20120928
  Serious: No
  Sender: FDA-Public Use
  Company Number: FR-ASTELLAS-2012EU002283

PATIENT
  Sex: Female

DRUGS (4)
  1. PROTOPIC [Suspect]
     Indication: DERMATITIS ATOPIC
     Dosage: UNK
     Route: 061
  2. NASONEX [Concomitant]
     Dosage: UNK
     Route: 065
  3. PROTOPIC [Suspect]
     Dosage: UNK
     Route: 061
     Dates: start: 20110101
  4. SINGULAIR [Concomitant]
     Dosage: UNK
     Route: 065

REACTIONS (3)
  - OFF LABEL USE [None]
  - CONJUNCTIVITIS [None]
  - INAPPROPRIATE SCHEDULE OF DRUG ADMINISTRATION [None]
